FAERS Safety Report 21114763 (Version 4)
Quarter: 2022Q3

REPORT INFORMATION
  Report Type: Spontaneous
  Country: US (occurrence: US)
  Receive Date: 20220721
  Receipt Date: 20220901
  Transmission Date: 20221027
  Serious: Yes (Other)
  Sender: FDA-Public Use
  Company Number: US-PFIZER INC-PV202200026835

PATIENT
  Age: 68 Year
  Sex: Female

DRUGS (3)
  1. IBRANCE [Suspect]
     Active Substance: PALBOCICLIB
     Dosage: ONCE DAILY IN EVENING FOR 21 DAYS ON 1 WEEK OFF
     Dates: start: 202112, end: 2022
  2. IBRANCE [Suspect]
     Active Substance: PALBOCICLIB
     Dosage: ONCE DAILY IN EVENING FOR 21 DAYS ON 1 WEEK OFF
     Dates: start: 2022, end: 20220715
  3. ANASTROZOLE [Concomitant]
     Active Substance: ANASTROZOLE
     Indication: Oestrogen therapy
     Dosage: 1 MG, DAILY
     Dates: start: 20211106

REACTIONS (7)
  - White blood cell count decreased [Unknown]
  - Red blood cell count decreased [Unknown]
  - Haemoglobin decreased [Unknown]
  - Pruritus [Recovering/Resolving]
  - Somnolence [Unknown]
  - Fatigue [Unknown]
  - Scratch [Unknown]

NARRATIVE: CASE EVENT DATE: 20220715
